FAERS Safety Report 5392944-1 (Version None)
Quarter: 2007Q3

REPORT INFORMATION
  Report Type: 
  Country: None (occurrence: None)
  Receive Date: 20070719
  Receipt Date: 20070705
  Transmission Date: 20080115
  Serious: Yes (Other)
  Sender: FDA-Public Use
  Company Number: 2007BI014370

PATIENT
  Sex: Male

DRUGS (3)
  1. ZEVALIN [Suspect]
     Indication: B-CELL LYMPHOMA
     Dosage: 32 MCI; IV
     Route: 042
     Dates: start: 20040801
  2. ZEVALIN [Suspect]
     Indication: B-CELL LYMPHOMA
     Dosage: 32 MCI; IV
     Route: 042
     Dates: start: 20040901
  3. RITUXAN [Concomitant]

REACTIONS (4)
  - LYMPHOMA [None]
  - RADIATION FIBROSIS - LUNG [None]
  - RADIATION INJURY [None]
  - RECURRENT CANCER [None]
